FAERS Safety Report 12563150 (Version 3)
Quarter: 2017Q1

REPORT INFORMATION
  Report Type: Spontaneous
  Country: US (occurrence: US)
  Receive Date: 20160715
  Receipt Date: 20170206
  Transmission Date: 20170428
  Serious: No
  Sender: FDA-Public Use
  Company Number: US-PFIZER INC-2016308374

PATIENT
  Age: 66 Year
  Sex: Female

DRUGS (4)
  1. FASLODEX [Concomitant]
     Active Substance: FULVESTRANT
  2. ANASTROZOLE. [Suspect]
     Active Substance: ANASTROZOLE
     Dosage: UNK
  3. IBRANCE [Suspect]
     Active Substance: PALBOCICLIB
     Dosage: 125 MG, UNK
     Dates: start: 201505
  4. IBRANCE [Suspect]
     Active Substance: PALBOCICLIB
     Dosage: 125 UNK, UNK
     Dates: start: 201607, end: 20161222

REACTIONS (5)
  - Vomiting [Unknown]
  - Condition aggravated [Unknown]
  - Lymphoedema [Unknown]
  - Fatigue [Unknown]
  - Nausea [Unknown]
